FAERS Safety Report 7259316-6 (Version None)
Quarter: 2011Q1

REPORT INFORMATION
  Report Type: 
  Country: None (occurrence: None)
  Receive Date: 20110129
  Receipt Date: 20100823
  Transmission Date: 20110831
  Serious: No
  Sender: FDA-Public Use
  Company Number: US-ABBOTT-10P-163-0665777-00

PATIENT
  Age: 43 Year
  Sex: Female

DRUGS (4)
  1. ULTRAM [Concomitant]
     Indication: PAIN
  2. HUMIRA [Suspect]
     Indication: CROHN'S DISEASE
     Route: 058
     Dates: start: 20100501
  3. YAZMAN [Concomitant]
     Indication: CONTRACEPTION
  4. LIALDA [Concomitant]
     Indication: COLITIS

REACTIONS (1)
  - PAIN IN EXTREMITY [None]
